FAERS Safety Report 9125947 (Version 1)
Quarter: 2013Q1

REPORT INFORMATION
  Report Type: Spontaneous
  Country: US (occurrence: US)
  Receive Date: 20130228
  Receipt Date: 20130228
  Transmission Date: 20140127
  Serious: No
  Sender: FDA-Public Use
  Company Number: US-009507513-1302USA011927

PATIENT
  Age: 67 Year
  Sex: Male

DRUGS (2)
  1. POSACONAZOLE [Suspect]
     Indication: GASTROINTESTINAL FUNGAL INFECTION
     Dosage: 200 MG, QID
     Route: 048
  2. POSACONAZOLE [Suspect]
     Dosage: 200 MG, TID
     Route: 048

REACTIONS (3)
  - Alopecia [Unknown]
  - Dry skin [Unknown]
  - Dry mouth [Unknown]
